FAERS Safety Report 4527261-2 (Version None)
Quarter: 2004Q4

REPORT INFORMATION
  Report Type: 
  Country: None (occurrence: None)
  Receive Date: 20041130
  Receipt Date: 20040908
  Transmission Date: 20050328
  Serious: No
  Sender: FDA-Public Use
  Company Number: FABR-10725

PATIENT
  Age: 49 Year
  Sex: Female
  Weight: 56 kg

DRUGS (9)
  1. FABRAZYME [Suspect]
     Indication: FABRY'S DISEASE
     Dosage: 60 MG Q2WKS IV
     Route: 042
     Dates: start: 20031004, end: 20040624
  2. DOXYCYCLINE [Concomitant]
  3. OCHOZYM [Concomitant]
  4. BENTYL [Concomitant]
  5. TRIMEBUTINE [Concomitant]
  6. FIRAC PLUS (LYSINE CLONIXINATE AND PARGEVERINE) [Concomitant]
  7. NEXIUM [Concomitant]
  8. MELOXICAM [Concomitant]
  9. LOMEFLOXACIN [Concomitant]

REACTIONS (6)
  - EAR PAIN [None]
  - FABRY'S DISEASE [None]
  - FEELING ABNORMAL [None]
  - HEADACHE [None]
  - HYPOACUSIS [None]
  - PARAESTHESIA [None]
